FAERS Safety Report 7321095-1 (Version None)
Quarter: 2011Q1

REPORT INFORMATION
  Report Type: 
  Country: None (occurrence: None)
  Receive Date: 20110228
  Receipt Date: 20110219
  Transmission Date: 20110831
  Serious: Yes (Hospitalization)
  Sender: FDA-Public Use
  Company Number: NL-MEDIMMUNE-MEDI-0012714

PATIENT
  Sex: Male
  Weight: 10.6 kg

DRUGS (1)
  1. SYNAGIS [Suspect]
     Route: 030
     Dates: start: 20101011, end: 20110131

REACTIONS (4)
  - LARYNGITIS [None]
  - ERYTHEMA [None]
  - PYREXIA [None]
  - LOWER RESPIRATORY TRACT INFECTION VIRAL [None]
